FAERS Safety Report 25048180 (Version 2)
Quarter: 2025Q3

REPORT INFORMATION
  Report Type: Report from Study
  Country: CN (occurrence: CN)
  Receive Date: 20250306
  Receipt Date: 20250707
  Transmission Date: 20251020
  Serious: Yes (Disabling, Other)
  Sender: NOVO NORDISK
  Company Number: CN-NOVOPROD-1379421

PATIENT
  Sex: Male

DRUGS (2)
  1. NOVOEIGHT [Suspect]
     Active Substance: ANTIHEMOPHILIC FACTOR, HUMAN RECOMBINANT
     Dosage: 3000 IU, BID
     Route: 042
     Dates: start: 20250203
  2. NOVOEIGHT [Suspect]
     Active Substance: ANTIHEMOPHILIC FACTOR, HUMAN RECOMBINANT
     Indication: Factor VIII deficiency
     Route: 042

REACTIONS (5)
  - Haemarthrosis [Unknown]
  - Arthralgia [Unknown]
  - Joint arthroplasty [Unknown]
  - Epilepsy [Unknown]
  - Joint swelling [Unknown]

NARRATIVE: CASE EVENT DATE: 20250201
